FAERS Safety Report 9254353 (Version 1)
Quarter: 2013Q1

REPORT INFORMATION
  Report Type: Spontaneous
  Country: US (occurrence: None)
  Receive Date: 20121203
  Receipt Date: 20121203
  Transmission Date: 20140127
  Serious: Yes (Hospitalization, Other)
  Sender: FDA-Public Use
  Company Number: 2012SP022368

PATIENT
  Age: 25 Year
  Sex: Female
  Weight: 68 kg

DRUGS (1)
  1. NUVARING [Suspect]
     Indication: CONTRACEPTION
     Dosage: UNK , VAGINAL RING
     Dates: start: 2006, end: 200905

REACTIONS (13)
  - Pulmonary embolism [None]
  - Irritable bowel syndrome [None]
  - Coeliac disease [None]
  - Urinary tract infection [None]
  - Urethral dilation procedure [None]
  - Papilloma viral infection [None]
  - Abdominal pain [None]
  - Diarrhoea [None]
  - Weight decreased [None]
  - Haematochezia [None]
  - Headache [None]
  - Factor V Leiden mutation [None]
  - Coagulopathy [None]
